FAERS Safety Report 9888994 (Version 2)
Quarter: 2014Q1

REPORT INFORMATION
  Report Type: Report from Study
  Country: DE (occurrence: DE)
  Receive Date: 20140211
  Receipt Date: 20140226
  Transmission Date: 20141002
  Serious: Yes (Life-Threatening, Hospitalization)
  Sender: FDA-Public Use
  Company Number: DE-UCBSA-111457

PATIENT
  Sex: Male

DRUGS (6)
  1. CERTOLIZUMAB PEGOL [Suspect]
     Indication: RHEUMATOID ARTHRITIS
     Dates: start: 201005, end: 20130301
  2. METHOTREXATE [Suspect]
     Indication: RHEUMATOID ARTHRITIS
     Dates: start: 200901
  3. SALBULAR [Concomitant]
  4. NOVOPULMON [Concomitant]
  5. VOLTAREN [Concomitant]
  6. FOLSAN [Concomitant]

REACTIONS (3)
  - Myocardial infarction [Unknown]
  - Cardiac failure [Unknown]
  - Pneumonia [Recovered/Resolved]
